FAERS Safety Report 7432435-7 (Version None)
Quarter: 2011Q2

REPORT INFORMATION
  Report Type: 
  Country: None (occurrence: None)
  Receive Date: 20110422
  Receipt Date: 20110418
  Transmission Date: 20111010
  Serious: Yes (Hospitalization, Other)
  Sender: FDA-Public Use
  Company Number: PHHY2011US08932

PATIENT
  Sex: Female
  Weight: 66 kg

DRUGS (1)
  1. TOBI [Suspect]
     Indication: CYSTIC FIBROSIS
     Dosage: 300 MG, BID
     Dates: start: 20090115

REACTIONS (2)
  - INFECTIVE PULMONARY EXACERBATION OF CYSTIC FIBROSIS [None]
  - UPPER RESPIRATORY TRACT INFECTION [None]
